FAERS Safety Report 9606224 (Version 1)
Quarter: 2013Q4

REPORT INFORMATION
  Report Type: Spontaneous
  Country: US (occurrence: US)
  Receive Date: 20131008
  Receipt Date: 20131008
  Transmission Date: 20140711
  Serious: No
  Sender: FDA-Public Use
  Company Number: US-AMGEN-USASP2013048306

PATIENT
  Age: 77 Year
  Sex: Female

DRUGS (3)
  1. PROLIA [Suspect]
     Indication: OSTEOPENIA
  2. PROLIA [Suspect]
     Indication: BREAST CANCER
  3. ARIMIDEX [Concomitant]

REACTIONS (6)
  - Hypokinesia [Recovering/Resolving]
  - Limb operation [Unknown]
  - Pain in extremity [Recovering/Resolving]
  - Arthralgia [Unknown]
  - Back pain [Unknown]
  - Insomnia [Unknown]
